FAERS Safety Report 5886602-4 (Version None)
Quarter: 2008Q3

REPORT INFORMATION
  Report Type: 
  Country: None (occurrence: None)
  Receive Date: 20080917
  Receipt Date: 20080718
  Transmission Date: 20090109
  Serious: Yes (Other)
  Sender: FDA-Public Use
  Company Number: PHBS2008FR05680

PATIENT
  Age: 7 Year
  Sex: Male

DRUGS (7)
  1. PAMIDRONATE DISODIUM [Suspect]
     Indication: FIBROUS DYSPLASIA OF BONE
     Dosage: 1 MG/KG, BIANNUAL
     Route: 042
  2. PAMIDRONATE DISODIUM [Suspect]
     Indication: BONE PAIN
     Dosage: 2 MG/KG, BIANNUAL
  3. PAMIDRONATE DISODIUM [Suspect]
     Indication: GAIT DISTURBANCE
     Dosage: 3 MG/KG, BIANNUAL
  4. ANTIDIURETIC HORMONE [Concomitant]
     Indication: ENURESIS
  5. ACE INHIBITOR NOS [Concomitant]
     Indication: MICROALBUMINURIA
  6. CALCIUM [Concomitant]
  7. VITAMIN D [Concomitant]

REACTIONS (19)
  - BIOPSY KIDNEY ABNORMAL [None]
  - BLOOD MAGNESIUM DECREASED [None]
  - BONE DISORDER [None]
  - CONGENITAL CYSTIC KIDNEY DISEASE [None]
  - ENURESIS [None]
  - GLOMERULAR FILTRATION RATE DECREASED [None]
  - HYPERURICAEMIA [None]
  - IMPAIRED HEALING [None]
  - KIDNEY FIBROSIS [None]
  - KIDNEY SMALL [None]
  - MICROALBUMINURIA [None]
  - MULTIPLE FRACTURES [None]
  - NEPHROPATHY TOXIC [None]
  - PATHOLOGICAL FRACTURE [None]
  - RENAL CYST [None]
  - RENAL IMPAIRMENT [None]
  - RENAL TUBULAR DISORDER [None]
  - SURGERY [None]
  - URINE URIC ACID ABNORMAL [None]
